FAERS Safety Report 16120214 (Version 1)
Quarter: 2019Q1

REPORT INFORMATION
  Report Type: Report from Study
  Country: US (occurrence: US)
  Receive Date: 20190326
  Receipt Date: 20190326
  Transmission Date: 20190418
  Serious: Yes (Other)
  Sender: FDA-Public Use
  Company Number: US-SHIRE-US201839261

PATIENT
  Age: 37 Year
  Sex: Male

DRUGS (1)
  1. TAKHZYRO [Suspect]
     Active Substance: LANADELUMAB-FLYO
     Indication: PRODUCT USED FOR UNKNOWN INDICATION
     Route: 065

REACTIONS (7)
  - Wheezing [Unknown]
  - Urticaria [Unknown]
  - Heart rate increased [Unknown]
  - Syncope [Unknown]
  - Rash [Unknown]
  - Dyspnoea [Unknown]
  - Chest discomfort [Unknown]
